FAERS Safety Report 9285203 (Version 1)
Quarter: 2013Q2

REPORT INFORMATION
  Report Type: Spontaneous
  Country: US (occurrence: US)
  Receive Date: 20130513
  Receipt Date: 20130513
  Transmission Date: 20140414
  Serious: No
  Sender: FDA-Public Use
  Company Number: US-BAYER-2013-056737

PATIENT
  Sex: Female
  Weight: 58.96 kg

DRUGS (5)
  1. BETASERON [Suspect]
     Dosage: 0.25 MG, QOD
     Route: 058
  2. DICYCLOMINE [Concomitant]
     Dosage: 20 MG, UNK
  3. VITAMIN D [Concomitant]
  4. MULTIVITAMIN [Concomitant]
  5. GABAPENTIN [Concomitant]
     Dosage: 300 MG, UNK

REACTIONS (2)
  - Injection site rash [Unknown]
  - Injection site urticaria [Unknown]
